FAERS Safety Report 14274633 (Version 1)
Quarter: 2017Q4

REPORT INFORMATION
  Report Type: Spontaneous
  Country: GB (occurrence: GB)
  Receive Date: 20171212
  Receipt Date: 20171212
  Transmission Date: 20180321
  Serious: Yes (Hospitalization)
  Sender: FDA-Public Use
  Company Number: GB-ABBVIE-17K-167-2189524-00

PATIENT
  Age: 70 Year
  Sex: Male

DRUGS (1)
  1. DUODOPA [Suspect]
     Active Substance: CARBIDOPA\LEVODOPA
     Indication: PARKINSON^S DISEASE
     Route: 050
     Dates: start: 2016, end: 20171114

REACTIONS (3)
  - Stoma site infection [Unknown]
  - Embedded device [Not Recovered/Not Resolved]
  - Ileus paralytic [Recovering/Resolving]

NARRATIVE: CASE EVENT DATE: 201709
